FAERS Safety Report 22310361 (Version 2)
Quarter: 2023Q2

REPORT INFORMATION
  Report Type: Spontaneous
  Country: US (occurrence: US)
  Receive Date: 20230511
  Receipt Date: 20230526
  Transmission Date: 20230722
  Serious: Yes (Life-Threatening, Hospitalization)
  Sender: FDA-Public Use
  Company Number: US-TEVA-2023-US-2884590

PATIENT
  Age: 31 Year
  Sex: Female

DRUGS (3)
  1. NOREPINEPHRINE [Suspect]
     Active Substance: NOREPINEPHRINE
     Indication: Haemodynamic instability
     Dosage: HIGH DOSE
     Route: 065
  2. EPINEPHRINE [Suspect]
     Active Substance: EPINEPHRINE
     Indication: Haemodynamic instability
     Route: 065
  3. VASOPRESSIN [Suspect]
     Active Substance: VASOPRESSIN
     Indication: Haemodynamic instability
     Route: 065

REACTIONS (1)
  - Drug ineffective [Unknown]
